FAERS Safety Report 8092153-1 (Version None)
Quarter: 2012Q1

REPORT INFORMATION
  Report Type: 
  Country: None (occurrence: None)
  Receive Date: 20120129
  Receipt Date: 20111107
  Transmission Date: 20120608
  Serious: No
  Sender: FDA-Public Use
  Company Number: US-ABBOTT-11P-163-0871921-00

PATIENT
  Age: 14 Year
  Sex: Male

DRUGS (4)
  1. HUMIRA [Suspect]
     Indication: PSORIASIS
     Dates: start: 20111012
  2. LEXAPRO [Concomitant]
     Indication: ANXIETY
  3. ABILIFY [Concomitant]
     Indication: ABNORMAL BEHAVIOUR
  4. WELLBUTRIN [Concomitant]
     Indication: DEPRESSION

REACTIONS (3)
  - PSORIASIS [None]
  - DEVICE MALFUNCTION [None]
  - DRUG DOSE OMISSION [None]
